FAERS Safety Report 5630596-3 (Version None)
Quarter: 2008Q1

REPORT INFORMATION
  Report Type: 
  Country: None (occurrence: None)
  Receive Date: 20080219
  Receipt Date: 20080211
  Transmission Date: 20080703
  Serious: Yes (Hospitalization)
  Sender: FDA-Public Use
  Company Number: B0508728A

PATIENT
  Age: 78 Year
  Sex: Female

DRUGS (6)
  1. ZINACEF [Suspect]
     Indication: PYELONEPHRITIS
     Route: 065
     Dates: start: 20070913
  2. CIPROXIN [Suspect]
     Indication: PYELONEPHRITIS
     Route: 065
     Dates: start: 20070915
  3. ACETAMINOPHEN [Concomitant]
     Route: 065
  4. PREDNISOLONE [Concomitant]
     Route: 065
  5. PEVARYL CREAM [Concomitant]
     Route: 065
  6. ASPIRIN [Concomitant]

REACTIONS (4)
  - CEREBRAL INFARCTION [None]
  - CLOSTRIDIAL INFECTION [None]
  - DIARRHOEA [None]
  - ENTEROCOLITIS [None]
